FAERS Safety Report 24762214 (Version 1)
Quarter: 2024Q4

REPORT INFORMATION
  Report Type: Spontaneous
  Country: US (occurrence: US)
  Receive Date: 20241221
  Receipt Date: 20241221
  Transmission Date: 20250114
  Serious: Yes (Life-Threatening, Other)
  Sender: CELLTRION
  Company Number: US-CELLTRION INC.-2024US005441

PATIENT

DRUGS (7)
  1. RITUXIMAB [Suspect]
     Active Substance: RITUXIMAB
     Indication: Lymphocytic lymphoma
     Dosage: WEEKLY INTERVALS (FIRST CYCLE)
  2. RITUXIMAB [Suspect]
     Active Substance: RITUXIMAB
     Dosage: WEEKLY INTERVALS (FIRST CYCLE)
  3. RITUXIMAB [Suspect]
     Active Substance: RITUXIMAB
     Dosage: WEEKLY INTERVALS (FIRST CYCLE)
  4. RITUXIMAB [Suspect]
     Active Substance: RITUXIMAB
     Dosage: 600 MG, AT THE STANDARD INFUSION RATE OF 75 ML/HR (FIRST CYCLE)
  5. ACETAMINOPHEN [Concomitant]
     Active Substance: ACETAMINOPHEN
     Indication: Premedication
     Dosage: 650 MG
  6. FAMOTIDINE [Concomitant]
     Active Substance: FAMOTIDINE
     Indication: Premedication
     Dosage: 20 MG
  7. LORATADINE [Concomitant]
     Active Substance: LORATADINE
     Indication: Premedication
     Dosage: 10 MG

REACTIONS (3)
  - Colitis [Recovered/Resolved]
  - Cytokine release syndrome [Recovered/Resolved]
  - Nausea [Unknown]
